FAERS Safety Report 8197528-8 (Version None)
Quarter: 2012Q1

REPORT INFORMATION
  Report Type: 
  Country: None (occurrence: None)
  Receive Date: 20120309
  Receipt Date: 20120301
  Transmission Date: 20120608
  Serious: Yes (Other)
  Sender: FDA-Public Use
  Company Number: ES-MPIJNJ-2012-01574

PATIENT

DRUGS (5)
  1. DEXAMETHASONE [Suspect]
     Indication: MULTIPLE MYELOMA
     Dosage: 40 MG, UNK
     Route: 048
     Dates: start: 20111219, end: 20120102
  2. REVLIMID [Suspect]
     Indication: MULTIPLE MYELOMA
     Dosage: 25 MG, UNK
     Route: 048
     Dates: start: 20111219, end: 20120106
  3. MELPHALAN HYDROCHLORIDE [Suspect]
     Indication: MULTIPLE MYELOMA
     Dosage: 16 MG, UNK
     Route: 048
     Dates: start: 20120116, end: 20120119
  4. VELCADE [Suspect]
     Indication: MULTIPLE MYELOMA
     Dosage: 2.3 MG, UNK
     Route: 042
     Dates: start: 20120116, end: 20120123
  5. PREDNISONE [Suspect]
     Indication: MULTIPLE MYELOMA
     Dosage: 90 MG, UNK
     Route: 048
     Dates: start: 20120116, end: 20120119

REACTIONS (2)
  - PARKINSON'S DISEASE [None]
  - CONDITION AGGRAVATED [None]
